FAERS Safety Report 16587362 (Version 1)
Quarter: 2019Q3

REPORT INFORMATION
  Report Type: Spontaneous
  Country: US (occurrence: US)
  Receive Date: 20190717
  Receipt Date: 20190717
  Transmission Date: 20191004
  Serious: Yes (Other)
  Sender: FDA-Public Use
  Company Number: US-SA-2019SA190774

PATIENT
  Age: 54 Year
  Sex: Female
  Weight: 120.2 kg

DRUGS (1)
  1. AUBAGIO [Suspect]
     Active Substance: TERIFLUNOMIDE
     Indication: MULTIPLE SCLEROSIS
     Dosage: UNK
     Dates: start: 2016, end: 2016

REACTIONS (2)
  - Urinary tract infection [Unknown]
  - Sepsis [Unknown]

NARRATIVE: CASE EVENT DATE: 2016
